FAERS Safety Report 13197230 (Version 1)
Quarter: 2017Q1

REPORT INFORMATION
  Report Type: Spontaneous
  Country: US (occurrence: US)
  Receive Date: 20170208
  Receipt Date: 20170208
  Transmission Date: 20170428
  Serious: No
  Sender: FDA-Public Use
  Company Number: US-BAYER-2017-020543

PATIENT
  Sex: Female
  Weight: 77.05 kg

DRUGS (1)
  1. CLIMARA PRO [Suspect]
     Active Substance: ESTRADIOL\LEVONORGESTREL
     Dosage: UNK
     Route: 062

REACTIONS (5)
  - Product adhesion issue [None]
  - No adverse event [None]
  - Drug ineffective [Not Recovered/Not Resolved]
  - Rash [None]
  - Metrorrhagia [None]

NARRATIVE: CASE EVENT DATE: 201511
